FAERS Safety Report 4374836-X (Version None)
Quarter: 2004Q2

REPORT INFORMATION
  Report Type: 
  Country: None (occurrence: None)
  Receive Date: 20040602
  Receipt Date: 20031001
  Transmission Date: 20050107
  Serious: Yes (Hospitalization)
  Sender: FDA-Public Use
  Company Number: US-JNJFOC-20031104988

PATIENT
  Age: 50 Year
  Sex: Female
  Weight: 90.7194 kg

DRUGS (6)
  1. PROPULSID [Suspect]
     Indication: GASTRITIS
     Dosage: 10 MG, 4 IN 1 DAY
     Dates: start: 19941018
  2. INSULIN [Concomitant]
  3. GLYNASE [Concomitant]
  4. CARDIZEM (DILTIAZEM HYDRCHLORIDE) [Concomitant]
  5. LOPRESSOR [Concomitant]
  6. SYNTHROID [Concomitant]

REACTIONS (1)
  - CHEST PAIN [None]
